FAERS Safety Report 6346965-2 (Version None)
Quarter: 2009Q3

REPORT INFORMATION
  Report Type: 
  Country: None (occurrence: None)
  Receive Date: 20090910
  Receipt Date: 20090904
  Transmission Date: 20100115
  Serious: Yes (Hospitalization)
  Sender: FDA-Public Use
  Company Number: FR-SP-2009-03796

PATIENT
  Age: 68 Year
  Sex: Male

DRUGS (8)
  1. IMMUCYST [Suspect]
     Indication: CARCINOMA IN SITU OF BLADDER
     Dosage: 1 INSTILLATION EVERY 2-3 WEEKS
     Route: 043
     Dates: start: 20090201, end: 20090618
  2. GLUCOPHAGE [Suspect]
     Indication: TYPE 2 DIABETES MELLITUS
     Route: 048
  3. GLIBENCLAMIDE [Suspect]
     Indication: TYPE 2 DIABETES MELLITUS
     Route: 048
  4. AVANDIA [Suspect]
     Indication: TYPE 2 DIABETES MELLITUS
     Route: 048
  5. JANUVIA (SITAGLIPTINE) [Suspect]
     Indication: TYPE 2 DIABETES MELLITUS
     Route: 048
  6. PERINDOPRIL ERBUMINE [Suspect]
     Route: 048
  7. EZETIMIBE [Suspect]
     Route: 048
  8. BISOPROLOL FUMARATE [Suspect]
     Route: 048

REACTIONS (1)
  - GRANULOMATOUS LIVER DISEASE [None]
